FAERS Safety Report 5261178-3 (Version None)
Quarter: 2007Q1

REPORT INFORMATION
  Report Type: 
  Country: None (occurrence: None)
  Receive Date: 20070309
  Receipt Date: 20070227
  Transmission Date: 20070707
  Serious: No
  Sender: FDA-Public Use
  Company Number: KR-PFIZER INC-2007010112

PATIENT
  Sex: Female
  Weight: 43 kg

DRUGS (4)
  1. ZELDOX (CAPSULES) [Suspect]
     Indication: SCHIZOPHRENIA, PARANOID TYPE
     Route: 048
     Dates: start: 20060517, end: 20060529
  2. ALPRAZOLAM [Concomitant]
     Indication: ANXIETY
     Dates: start: 20060517, end: 20060523
  3. VALIUM [Concomitant]
     Indication: ANXIETY
     Dates: start: 20060523, end: 20060615
  4. BROMOCRIPTINE MESYLATE [Concomitant]

REACTIONS (1)
  - HYPOTENSION [None]
